FAERS Safety Report 9524329 (Version 1)
Quarter: 2013Q3

REPORT INFORMATION
  Report Type: Spontaneous
  Country: CN (occurrence: None)
  Receive Date: 20130912
  Receipt Date: 20130912
  Transmission Date: 20140515
  Serious: Yes (Hospitalization)
  Sender: FDA-Public Use
  Company Number: SYM-2013-10527

PATIENT
  Age: 49 Year
  Sex: Male

DRUGS (5)
  1. 5 FU [Suspect]
     Indication: COLORECTAL CANCER METASTATIC
     Route: 040
     Dates: start: 20130619, end: 20130619
  2. BLINDED THERAPY (OTHER THERAPEUTIC PRODUCTS) (SOLUTION FOR INFUSION) (NULL) [Suspect]
     Route: 041
     Dates: start: 20130619, end: 20130619
  3. IRINOTECAN (IRINOTECAN) (SOLUTION FOR INFUSION) (IRINOTECAN) [Suspect]
     Indication: COLORECTAL CANCER METASTATIC
     Route: 041
     Dates: start: 20130619, end: 20130619
  4. LEUCOVORIN (FOLINIC ACID) (SOLUTION FOR INFUSION) (FOLINIC ACID) [Suspect]
     Indication: COLORECTAL CANCER METASTATIC
     Route: 041
     Dates: start: 20130619, end: 20130619
  5. LEUCOGEN (LEUCOGEN) (LEUCOGEN) [Concomitant]

REACTIONS (4)
  - Peritonitis [None]
  - Abdominal pain [None]
  - Neutrophil count increased [None]
  - C-reactive protein increased [None]
